FAERS Safety Report 8800140 (Version 1)
Quarter: 2012Q4

REPORT INFORMATION
  Report Type: Report from Study
  Country: HU (occurrence: HU)
  Receive Date: 20120921
  Receipt Date: 20120921
  Transmission Date: 20130627
  Serious: Yes (Other)
  Sender: FDA-Public Use
  Company Number: HU-ROCHE-1122768

PATIENT
  Age: 73 Year
  Sex: Male

DRUGS (1)
  1. XELODA [Suspect]
     Indication: COLORECTAL CANCER
     Dosage: 2x4 days
     Route: 048
     Dates: start: 20090427, end: 200907

REACTIONS (1)
  - Neoplasm progression [Unknown]
